FAERS Safety Report 10788851 (Version 1)
Quarter: 2015Q1

REPORT INFORMATION
  Report Type: Spontaneous
  Country: US (occurrence: US)
  Receive Date: 20150212
  Receipt Date: 20150212
  Transmission Date: 20150721
  Serious: No
  Sender: FDA-Public Use
  Company Number: US-GLAXOSMITHKLINE-A1066886A

PATIENT

DRUGS (1)
  1. NICORETTE [Suspect]
     Active Substance: NICOTINE
     Indication: EX-TOBACCO USER
     Dates: start: 20140323, end: 20140325

REACTIONS (8)
  - Throat tightness [Recovering/Resolving]
  - Throat irritation [Recovering/Resolving]
  - Tongue blistering [Recovering/Resolving]
  - Oral discomfort [Recovering/Resolving]
  - Oropharyngeal pain [Recovering/Resolving]
  - Eructation [Recovering/Resolving]
  - Oropharyngeal discomfort [Recovering/Resolving]
  - Drug ineffective [Unknown]

NARRATIVE: CASE EVENT DATE: 20140323
